FAERS Safety Report 15436789 (Version 1)
Quarter: 2018Q3

REPORT INFORMATION
  Report Type: Report from Study
  Country: CO (occurrence: CO)
  Receive Date: 20180927
  Receipt Date: 20180927
  Transmission Date: 20181010
  Serious: Yes (Other)
  Sender: FDA-Public Use
  Company Number: CO-SEATTLE GENETICS-2018SGN01000

PATIENT
  Age: 66 Year
  Sex: Male
  Weight: 50 kg

DRUGS (5)
  1. ESCITALOPRAM OXALATE. [Concomitant]
     Active Substance: ESCITALOPRAM OXALATE
  2. BRENTUXIMAB VEDOTIN?MPI [Suspect]
     Active Substance: BRENTUXIMAB VEDOTIN
     Indication: HODGKIN^S DISEASE
     Dosage: 88 MG, UNK
     Route: 042
     Dates: start: 20171212
  3. FERROUS SULFATE. [Concomitant]
     Active Substance: FERROUS SULFATE
  4. PARACETAMOL [Concomitant]
     Active Substance: ACETAMINOPHEN
     Dosage: UNK, QD
  5. ASCORBIC ACID, BIOTIN, CALCIUM CARBONATE, CALCIUM PANTOTHENATE [Concomitant]

REACTIONS (11)
  - Malnutrition [Unknown]
  - Night sweats [Unknown]
  - Decreased appetite [Unknown]
  - Loss of consciousness [Unknown]
  - Polyuria [Unknown]
  - Feeling hot [Unknown]
  - Dehydration [Unknown]
  - Insomnia [Unknown]
  - Muscular weakness [Recovered/Resolved]
  - Pyrexia [Unknown]
  - Tremor [Unknown]

NARRATIVE: CASE EVENT DATE: 201801
